FAERS Safety Report 5256642-7 (Version None)
Quarter: 2007Q1

REPORT INFORMATION
  Report Type: 
  Country: None (occurrence: None)
  Receive Date: 20070306
  Receipt Date: 20070227
  Transmission Date: 20070707
  Serious: Yes (Hospitalization)
  Sender: FDA-Public Use
  Company Number: US-BRISTOL-MYERS SQUIBB COMPANY-13648183

PATIENT
  Age: 51 Year
  Sex: Male
  Weight: 96 kg

DRUGS (4)
  1. ERBITUX [Suspect]
     Indication: TONSIL CANCER
     Route: 041
     Dates: start: 20070108, end: 20070108
  2. CARBOPLATIN [Suspect]
     Indication: TONSIL CANCER
     Dates: start: 20070108, end: 20070108
  3. PACLITAXEL [Suspect]
     Indication: TONSIL CANCER
     Dates: start: 20070108, end: 20070108
  4. RADIATION THERAPY [Suspect]
     Indication: TONSIL CANCER
     Dates: start: 20070112, end: 20070112

REACTIONS (8)
  - COUGH [None]
  - DEHYDRATION [None]
  - DYSPHAGIA [None]
  - INFECTION [None]
  - MUCOSAL INFLAMMATION [None]
  - NAUSEA [None]
  - PNEUMONIA ASPIRATION [None]
  - VOMITING [None]
